FAERS Safety Report 13959190 (Version 2)
Quarter: 2017Q3

REPORT INFORMATION
  Report Type: Spontaneous
  Country: US (occurrence: US)
  Receive Date: 20170912
  Receipt Date: 20170926
  Transmission Date: 20171128
  Serious: No
  Sender: FDA-Public Use
  Company Number: US-PFIZER INC-2017388851

PATIENT
  Age: 52 Year
  Sex: Female
  Weight: 77.11 kg

DRUGS (5)
  1. LEVOXYL [Suspect]
     Active Substance: LEVOTHYROXINE SODIUM
     Indication: HYPOTHYROIDISM
     Dosage: 50 UG, UNK
     Route: 048
     Dates: start: 201705
  2. METFORMIN [Concomitant]
     Active Substance: METFORMIN HYDROCHLORIDE
     Indication: GLUCOSE TOLERANCE IMPAIRED
     Dosage: 1000 MG, 1X/DAY (500MG TAKE TWO TABLETS ONCE A DAY)
     Dates: start: 201705
  3. LEVOXYL [Suspect]
     Active Substance: LEVOTHYROXINE SODIUM
     Dosage: 100 UG, 1X/DAY (IN THE MORNING)
     Route: 048
     Dates: start: 20170707
  4. LEVOXYL [Suspect]
     Active Substance: LEVOTHYROXINE SODIUM
     Dosage: 100 UG, DAILY
     Dates: end: 20170825
  5. LEVOXYL [Suspect]
     Active Substance: LEVOTHYROXINE SODIUM
     Dosage: 100 UG, DAILY (2 OF THE 50 UG TABLETS)
     Route: 048
     Dates: start: 201707

REACTIONS (4)
  - Pruritus [Unknown]
  - Rash [Recovered/Resolved]
  - Rash [Recovered/Resolved]
  - Reaction to excipient [Unknown]

NARRATIVE: CASE EVENT DATE: 20170707
